FAERS Safety Report 13360082 (Version 1)
Quarter: 2017Q1

REPORT INFORMATION
  Report Type: Spontaneous
  Country: FR (occurrence: FR)
  Receive Date: 20170322
  Receipt Date: 20170322
  Transmission Date: 20170429
  Serious: Yes (Hospitalization)
  Sender: FDA-Public Use
  Company Number: FR-ASTRAZENECA-2017SE28680

PATIENT
  Age: 22686 Day
  Sex: Female

DRUGS (16)
  1. LASILIX SPECIAL [Suspect]
     Active Substance: FUROSEMIDE
     Indication: RENAL FAILURE
     Route: 048
  2. LASILIX SPECIAL [Suspect]
     Active Substance: FUROSEMIDE
     Indication: RENAL FAILURE
     Dosage: LASILIX, 40 MG, 2 DF ONCE DAILY
     Route: 048
  3. TAHOR [Concomitant]
     Active Substance: ATORVASTATIN CALCIUM
  4. ACTRAPID [Concomitant]
     Active Substance: INSULIN HUMAN
  5. COAPROVEL [Suspect]
     Active Substance: HYDROCHLOROTHIAZIDE\IRBESARTAN
     Indication: HYPERTENSION
     Dosage: 300MG/12.5MG; 0.5 DF PER DAY
     Route: 048
     Dates: end: 20170209
  6. BETAXOLOL HYDROCHLORIDE. [Concomitant]
     Active Substance: BETAXOLOL HYDROCHLORIDE
  7. CERTICAN [Concomitant]
     Active Substance: EVEROLIMUS
  8. CORTANCYL [Concomitant]
     Active Substance: PREDNISONE
  9. KARDEGIC [Concomitant]
     Active Substance: ASPIRIN LYSINE
  10. INEXIUM [Suspect]
     Active Substance: ESOMEPRAZOLE
     Indication: GASTROOESOPHAGEAL REFLUX DISEASE
     Route: 048
     Dates: end: 20170209
  11. TARDYFERON [Concomitant]
     Active Substance: FERROUS SULFATE
  12. CELLCEPT [Concomitant]
     Active Substance: MYCOPHENOLATE MOFETIL\MYCOPHENOLATE MOFETIL HYDROCHLORIDE
  13. FOLIC ACID. [Concomitant]
     Active Substance: FOLIC ACID
  14. HYPERIUM [Concomitant]
     Active Substance: RILMENIDINE PHOSPHATE
  15. UMULINE [Concomitant]
     Active Substance: INSULIN HUMAN
     Dosage: 100 UI/ML
  16. EUPRESSYL [Concomitant]
     Active Substance: URAPIDIL

REACTIONS (9)
  - Asthenia [Unknown]
  - General physical health deterioration [Recovered/Resolved]
  - Muscular weakness [Unknown]
  - Hyponatraemia [Recovered/Resolved]
  - Decreased appetite [Unknown]
  - Weight decreased [Unknown]
  - Nausea [Unknown]
  - Myalgia [Unknown]
  - Axonal neuropathy [Unknown]

NARRATIVE: CASE EVENT DATE: 20170209
